FAERS Safety Report 10600866 (Version 1)
Quarter: 2014Q4

REPORT INFORMATION
  Report Type: Spontaneous
  Country: US (occurrence: None)
  Receive Date: 20141121
  Receipt Date: 20141121
  Transmission Date: 20150529
  Serious: Yes (Hospitalization)
  Sender: FDA-Public Use
  Company Number: None

PATIENT
  Age: 69 Year
  Sex: Male
  Weight: 96.4 kg

DRUGS (1)
  1. DICLOFENAC [Suspect]
     Active Substance: DICLOFENAC
     Indication: PAIN
     Dates: start: 20140801, end: 20140816

REACTIONS (7)
  - Diverticulum [None]
  - Haematocrit decreased [None]
  - Small intestine polyp [None]
  - Large intestine polyp [None]
  - Gastric haemorrhage [None]
  - Colon adenoma [None]
  - Haemoglobin decreased [None]

NARRATIVE: CASE EVENT DATE: 20140816
